FAERS Safety Report 8770075 (Version 2)
Quarter: 2012Q4

REPORT INFORMATION
  Report Type: 
  Country: US (occurrence: US)
  Receive Date: 20120914
  Receipt Date: 20121207
  Transmission Date: 20130627
  Serious: No
  Sender: FDA-Public Use
  Company Number: US-009507513-1208USA011716

PATIENT
  Age: 41 None
  Sex: Female
  Weight: 102.4 kg

DRUGS (4)
  1. IMPLANON [Suspect]
     Indication: CONTRACEPTION
     Dosage: 1 DF, UNK
     Dates: start: 20090126
  2. HYDROCHLOROTHIAZIDE [Concomitant]
  3. PROZAC [Concomitant]
  4. WELLBUTRIN [Concomitant]

REACTIONS (4)
  - Weight increased [Not Recovered/Not Resolved]
  - Incorrect drug administration duration [Unknown]
  - Device difficult to use [Unknown]
  - Medical device complication [Unknown]
